FAERS Safety Report 19965500 (Version 1)
Quarter: 2021Q4

REPORT INFORMATION
  Report Type: Report from Study
  Country: US (occurrence: US)
  Receive Date: 20211018
  Receipt Date: 20211018
  Transmission Date: 20220303
  Serious: Yes (Death)
  Sender: FDA-Public Use
  Company Number: 2021A771791

PATIENT
  Sex: Female
  Weight: 64.4 kg

DRUGS (7)
  1. TAGRISSO [Suspect]
     Active Substance: OSIMERTINIB
     Indication: Non-small cell lung cancer
     Route: 048
     Dates: start: 20180306
  2. GABAPENTIN [Concomitant]
     Active Substance: GABAPENTIN
  3. KEFLEX [Concomitant]
     Active Substance: CEPHALEXIN
  4. ELIQUIS [Concomitant]
     Active Substance: APIXABAN
  5. FOLIC ACID [Concomitant]
     Active Substance: FOLIC ACID
  6. CILOSTAZOL [Concomitant]
     Active Substance: CILOSTAZOL
  7. TYLENOL [Concomitant]
     Active Substance: ACETAMINOPHEN

REACTIONS (1)
  - Death [Fatal]
